FAERS Safety Report 9589299 (Version 3)
Quarter: 2014Q1

REPORT INFORMATION
  Report Type: Spontaneous
  Country: US (occurrence: US)
  Receive Date: 20131003
  Receipt Date: 20140210
  Transmission Date: 20141002
  Serious: Yes (Other)
  Sender: FDA-Public Use
  Company Number: US-TEVA-415854USA

PATIENT
  Age: 26 Year
  Sex: Female

DRUGS (8)
  1. COPAXONE [Suspect]
     Indication: MULTIPLE SCLEROSIS
     Dates: start: 201305, end: 2014
  2. VITAMIN D [Concomitant]
     Route: 048
  3. PRENATAL VITAMINS [Concomitant]
  4. LEVOTHYROXINE [Concomitant]
     Indication: HYPOTHYROIDISM
     Route: 048
  5. REBIF [Concomitant]
  6. CYMBALTA [Concomitant]
  7. VALIUM [Concomitant]
  8. VERAPAMIL [Concomitant]

REACTIONS (3)
  - Gestational diabetes [Unknown]
  - Caesarean section [Unknown]
  - Live birth [Unknown]
